FAERS Safety Report 5593873-0 (Version None)
Quarter: 2008Q1

REPORT INFORMATION
  Report Type: 
  Country: None (occurrence: None)
  Receive Date: 20080116
  Receipt Date: 20080109
  Transmission Date: 20080703
  Serious: Yes (Other)
  Sender: FDA-Public Use
  Company Number: TR-ROXANE LABORATORIES, INC-2008-BP-00377RO

PATIENT
  Age: 61 Year
  Sex: Female

DRUGS (5)
  1. TAMOXIFEN CITRATE [Suspect]
     Indication: BREAST CANCER FEMALE
  2. CYCLOPHOSPHAMIDE [Concomitant]
     Indication: BREAST CANCER
  3. ADRIAMYCIN PFS [Concomitant]
     Indication: BREAST CANCER
  4. FLUOROURACIL [Concomitant]
     Indication: BREAST CANCER
  5. ANASTRAZOLE [Concomitant]
     Indication: BREAST CANCER

REACTIONS (1)
  - THROMBOCYTOPENIA [None]
